FAERS Safety Report 13535723 (Version 3)
Quarter: 2017Q2

REPORT INFORMATION
  Report Type: Spontaneous
  Country: IT (occurrence: IT)
  Receive Date: 20170511
  Receipt Date: 20170628
  Transmission Date: 20170830
  Serious: Yes (Hospitalization, Other)
  Sender: FDA-Public Use
  Company Number: IT-PFIZER INC-2017205067

PATIENT
  Age: 85 Year
  Sex: Female

DRUGS (12)
  1. CARDIOASPIRIN [Interacting]
     Active Substance: ASPIRIN
     Indication: INFARCTION
     Dosage: 100 MG, DAILY
     Dates: end: 2017
  2. BISOPROLOL FUMARATE. [Concomitant]
     Active Substance: BISOPROLOL FUMARATE
     Dosage: UNK
  3. MINIAS [Concomitant]
     Active Substance: LORMETAZEPAM
     Dosage: UNK
  4. LANSOPRAZOLE. [Concomitant]
     Active Substance: LANSOPRAZOLE
     Dosage: UNK
  5. CLOPIDOGREL [Interacting]
     Active Substance: CLOPIDOGREL BISULFATE
     Indication: INFARCTION
     Dosage: 75 MG, DAILY
     Route: 048
     Dates: end: 2017
  6. HALDOL [Concomitant]
     Active Substance: HALOPERIDOL
     Dosage: UNK
  7. AROMASIN [Concomitant]
     Active Substance: EXEMESTANE
     Dosage: UNK
  8. ATORVASTATIN CALCIUM. [Suspect]
     Active Substance: ATORVASTATIN CALCIUM
     Indication: INFARCTION
     Dosage: 80 MG, DAILY
  9. TRITTICO [Concomitant]
     Active Substance: TRAZODONE HYDROCHLORIDE
     Dosage: UNK
  10. NORVASC [Concomitant]
     Active Substance: AMLODIPINE BESYLATE
     Dosage: UNK
  11. RAMIPRIL. [Concomitant]
     Active Substance: RAMIPRIL
     Dosage: UNK
  12. FUROSEMIDE. [Concomitant]
     Active Substance: FUROSEMIDE
     Dosage: UNK

REACTIONS (3)
  - Anaemia [Recovering/Resolving]
  - Drug interaction [Unknown]
  - Rectal haemorrhage [Recovering/Resolving]

NARRATIVE: CASE EVENT DATE: 20170428
